FAERS Safety Report 9341575 (Version 1)
Quarter: 2013Q2

REPORT INFORMATION
  Report Type: Spontaneous
  Country: BR (occurrence: BR)
  Receive Date: 20130611
  Receipt Date: 20130611
  Transmission Date: 20140414
  Serious: Yes (Other)
  Sender: FDA-Public Use
  Company Number: PHHY2013BR058570

PATIENT
  Sex: Female

DRUGS (2)
  1. RITALIN LA [Suspect]
  2. TRILEPTAL [Suspect]

REACTIONS (1)
  - Central auditory processing disorder [Unknown]
